FAERS Safety Report 6126809-4 (Version None)
Quarter: 2009Q1

REPORT INFORMATION
  Report Type: 
  Country: None (occurrence: None)
  Receive Date: 20090320
  Receipt Date: 20090219
  Transmission Date: 20090719
  Serious: No
  Sender: FDA-Public Use
  Company Number: US-BAYER-200814494BCC

PATIENT
  Age: 64 Year
  Sex: Female
  Weight: 64 kg

DRUGS (9)
  1. ALEVE [Suspect]
     Indication: MYALGIA
     Dosage: TOTAL DAILY DOSE: 440 MG  UNIT DOSE: 220 MG
     Route: 048
  2. ASPIRIN [Suspect]
     Indication: DRUG USE FOR UNKNOWN INDICATION
     Route: 048
     Dates: start: 20080601
  3. ASPIRIN [Concomitant]
  4. BISOPROLOL [Concomitant]
  5. SYNTHROID [Concomitant]
  6. CHOLESTEROL MEDICATIONS [Concomitant]
  7. TYLENOL [Concomitant]
  8. ADVIL [Concomitant]
  9. RED YEAST RICE [Concomitant]

REACTIONS (2)
  - MYALGIA [None]
  - PAIN IN EXTREMITY [None]
